FAERS Safety Report 25411948 (Version 1)
Quarter: 2025Q2

REPORT INFORMATION
  Report Type: Spontaneous
  Country: SA (occurrence: SA)
  Receive Date: 20250609
  Receipt Date: 20250609
  Transmission Date: 20250716
  Serious: Yes (Hospitalization, Other)
  Sender: RANBAXY
  Company Number: SA-SUN PHARMACEUTICAL INDUSTRIES INC-2025RR-511144

PATIENT
  Age: 48 Year
  Sex: Male

DRUGS (1)
  1. ATORVASTATIN [Suspect]
     Active Substance: ATORVASTATIN
     Indication: Dyslipidaemia
     Dosage: 40 MILLIGRAM, DAILY
     Route: 065

REACTIONS (1)
  - Pancreatitis acute [Recovered/Resolved]
